FAERS Safety Report 10007958 (Version 1)
Quarter: 2014Q1

REPORT INFORMATION
  Report Type: Report from Study
  Country: US (occurrence: US)
  Receive Date: 20140313
  Receipt Date: 20140313
  Transmission Date: 20141002
  Serious: Yes (Hospitalization)
  Sender: FDA-Public Use
  Company Number: US-TEVA-467994USA

PATIENT
  Age: 1 Year
  Sex: Female
  Weight: 10.9 kg

DRUGS (10)
  1. LESTAURTINIB [Suspect]
     Indication: ACUTE LYMPHOCYTIC LEUKAEMIA
     Dates: start: 20130410
  2. CYCLOPHOSPHAMIDE [Suspect]
     Indication: ACUTE LYMPHOCYTIC LEUKAEMIA
     Dates: start: 20130410
  3. CYTARABINE [Suspect]
     Indication: ACUTE LYMPHOCYTIC LEUKAEMIA
     Dates: start: 20130410
  4. DEXAMETHASONE [Suspect]
     Dates: start: 20130410
  5. ETOPOSIDE [Suspect]
     Indication: ACUTE LYMPHOCYTIC LEUKAEMIA
     Dates: start: 20130410
  6. FOLINIC ACID [Suspect]
     Dates: start: 20130410
  7. MERCAPTOPURINE [Suspect]
     Dates: start: 20130410
  8. METHOTREXATE [Suspect]
     Indication: ACUTE LYMPHOCYTIC LEUKAEMIA
     Dates: start: 20130410
  9. PEG-L-ASPARAGINASE [Suspect]
     Dates: start: 20130410
  10. VINCRISTINE [Suspect]
     Dates: start: 20130410

REACTIONS (1)
  - Febrile neutropenia [Recovered/Resolved]
